FAERS Safety Report 5902676-6 (Version None)
Quarter: 2008Q3

REPORT INFORMATION
  Report Type: 
  Country: None (occurrence: None)
  Receive Date: 20080929
  Receipt Date: 20080929
  Transmission Date: 20090109
  Serious: Yes (Hospitalization)
  Sender: FDA-Public Use
  Company Number: None

PATIENT
  Sex: Female
  Weight: 54.4316 kg

DRUGS (2)
  1. CELEXA [Suspect]
     Indication: DEPRESSION
     Dosage: 20MG ONE TIME ONLY PO
     Route: 048
     Dates: start: 20080916
  2. FENTANYL TRANSDERMAL SYSTEM [Concomitant]

REACTIONS (9)
  - CHILLS [None]
  - DIZZINESS [None]
  - DYSPNOEA [None]
  - FEAR [None]
  - HEAD TITUBATION [None]
  - PALPITATIONS [None]
  - POISONING [None]
  - SEROTONIN SYNDROME [None]
  - YAWNING [None]
